FAERS Safety Report 6298137-8 (Version None)
Quarter: 2009Q3

REPORT INFORMATION
  Report Type: 
  Country: None (occurrence: None)
  Receive Date: 20090805
  Receipt Date: 20090803
  Transmission Date: 20100115
  Serious: Yes (Death, Hospitalization)
  Sender: FDA-Public Use
  Company Number: US-GENENTECH-287153

PATIENT
  Sex: Male
  Weight: 63.492 kg

DRUGS (3)
  1. AVASTIN [Suspect]
     Indication: NON-SMALL CELL LUNG CANCER
     Dosage: 350 MG, Q2W
     Route: 042
     Dates: start: 20090330, end: 20090608
  2. TAXOL [Concomitant]
     Indication: NON-SMALL CELL LUNG CANCER
     Dosage: 120 MG, 1/WEEK
     Dates: start: 20090330, end: 20090706
  3. CARBOPLATIN [Concomitant]
     Indication: NON-SMALL CELL LUNG CANCER
     Dosage: 150 MG, UNK
     Dates: start: 20090330, end: 20090706

REACTIONS (3)
  - HAEMOPTYSIS [None]
  - NAUSEA [None]
  - PRURITUS [None]
